FAERS Safety Report 4290234-1 (Version None)
Quarter: 2004Q1

REPORT INFORMATION
  Report Type: 
  Country: None (occurrence: None)
  Receive Date: 20040209
  Receipt Date: 20040126
  Transmission Date: 20041129
  Serious: Yes (Hospitalization, Other)
  Sender: FDA-Public Use
  Company Number: 2004005157

PATIENT
  Age: 59 Year
  Sex: Male

DRUGS (14)
  1. NEURONTIN [Suspect]
     Indication: PAIN
     Dosage: 600 MG (200, TID),ORAL
     Route: 048
  2. TRACLEER [Suspect]
     Indication: PULMONARY HYPERTENSION
     Dosage: 125 MG (62.5, BID), ORAL
     Route: 048
     Dates: start: 20031101, end: 20031217
  3. OXYCODONE HCL [Suspect]
     Indication: PAIN
     Dosage: 120 MG (BID),
  4. OXYCOCET (PARACETAMOL, OXYCODONE HYDROCHLORIDE) [Suspect]
     Indication: PAIN
     Dosage: (Q4H, ORAL)
     Route: 048
  5. WARFARIN SODIUM [Concomitant]
  6. FUROSEMIDE [Concomitant]
  7. METOLAZONE [Concomitant]
  8. PREDNISONE [Concomitant]
  9. EPOPROSTENOL SODIUM (EPOPROSTENOL SODIUM) [Concomitant]
  10. PANTOPRAZOLE (PANTOPRAZOLE) [Concomitant]
  11. METFORMIN HCL [Concomitant]
  12. BACTRIM [Concomitant]
  13. OXYGEN (OXYGEN) [Concomitant]
  14. LISINOPRIL [Concomitant]

REACTIONS (5)
  - BLOOD CREATININE INCREASED [None]
  - ENCEPHALOPATHY [None]
  - MYOCLONUS [None]
  - OEDEMA PERIPHERAL [None]
  - SOMNOLENCE [None]
